FAERS Safety Report 4490600-5 (Version None)
Quarter: 2004Q4

REPORT INFORMATION
  Report Type: 
  Country: None (occurrence: None)
  Receive Date: 20041027
  Receipt Date: 20041019
  Transmission Date: 20050328
  Serious: Yes (Hospitalization)
  Sender: FDA-Public Use
  Company Number: FRWYE122219OCT04

PATIENT
  Age: 58 Year
  Sex: Female

DRUGS (3)
  1. EFFEXOR [Suspect]
     Indication: ANOREXIA
     Dosage: 40 MG 3X PER 1 DAY, ORAL
     Route: 048
     Dates: start: 20020101, end: 20041001
  2. EFFEXOR [Suspect]
     Indication: DEPRESSION
     Dosage: 40 MG 3X PER 1 DAY, ORAL
     Route: 048
     Dates: start: 20020101, end: 20041001
  3. LYSANXIA (PRAZEPAM) [Concomitant]

REACTIONS (6)
  - CONDITION AGGRAVATED [None]
  - DEPRESSION [None]
  - DRUG INEFFECTIVE [None]
  - GENERAL PHYSICAL HEALTH DETERIORATION [None]
  - ILEUS [None]
  - MYOCARDIAL INFARCTION [None]
